FAERS Safety Report 25230232 (Version 1)
Quarter: 2025Q2

REPORT INFORMATION
  Report Type: Spontaneous
  Country: DE (occurrence: DE)
  Receive Date: 20250423
  Receipt Date: 20250423
  Transmission Date: 20250716
  Serious: Yes (Hospitalization)
  Sender: JOHNSON AND JOHNSON
  Company Number: DE-JNJFOC-20250377358

PATIENT
  Age: 65 Year

DRUGS (6)
  1. SYMTUZA [Suspect]
     Active Substance: COBICISTAT\DARUNAVIR\EMTRICITABINE\TENOFOVIR ALAFENAMIDE
     Indication: HIV infection
     Route: 065
  2. RAL [Concomitant]
  3. BISOPROLOL FUMARATE\HYDROCHLOROTHIAZIDE [Concomitant]
     Active Substance: BISOPROLOL FUMARATE\HYDROCHLOROTHIAZIDE
  4. AMLODIPINE [Concomitant]
     Active Substance: AMLODIPINE BESYLATE
  5. LOPERAMIDE [Concomitant]
     Active Substance: LOPERAMIDE
  6. NOVORAPID [Concomitant]
     Active Substance: INSULIN ASPART

REACTIONS (3)
  - Disorientation [Unknown]
  - Personality change [Unknown]
  - Memory impairment [Unknown]

NARRATIVE: CASE EVENT DATE: 20231101
